FAERS Safety Report 12409959 (Version 4)
Quarter: 2020Q2

REPORT INFORMATION
  Report Type: Spontaneous
  Country: FR (occurrence: FR)
  Receive Date: 20160527
  Receipt Date: 20200624
  Transmission Date: 20200713
  Serious: Yes (Other)
  Sender: FDA-Public Use
  Company Number: FR-009507513-1605FRA010979

PATIENT
  Age: 65 Year
  Sex: Female
  Weight: 37 kg

DRUGS (3)
  1. KEYTRUDA [Suspect]
     Active Substance: PEMBROLIZUMAB
     Indication: METASTASES TO LUNG
     Dosage: CYCLICAL
     Route: 042
     Dates: start: 20160226, end: 20160226
  2. KEYTRUDA [Suspect]
     Active Substance: PEMBROLIZUMAB
     Indication: METASTATIC MALIGNANT MELANOMA
     Dosage: UNK
     Route: 042
     Dates: start: 20160115, end: 20160411
  3. KEYTRUDA [Suspect]
     Active Substance: PEMBROLIZUMAB
     Indication: METASTASES TO LYMPH NODES
     Dosage: UNK
     Route: 042
     Dates: start: 20160411, end: 20160610

REACTIONS (4)
  - Pulmonary granuloma [Unknown]
  - Rash erythematous [Recovered/Resolved]
  - Rash maculo-papular [Unknown]
  - Eosinophilia [Not Recovered/Not Resolved]

NARRATIVE: CASE EVENT DATE: 20160226
